FAERS Safety Report 23580257 (Version 1)
Quarter: 2024Q1

REPORT INFORMATION
  Report Type: Spontaneous
  Country: FR (occurrence: FR)
  Receive Date: 20240229
  Receipt Date: 20240229
  Transmission Date: 20240410
  Serious: Yes (Other)
  Sender: FDA-Public Use
  Company Number: None

PATIENT
  Age: 67 Year
  Sex: Male

DRUGS (8)
  1. CEFTAZIDIME [Suspect]
     Active Substance: CEFTAZIDIME
     Indication: Product used for unknown indication
     Dosage: 6.000G QD
     Route: 042
     Dates: start: 20231229, end: 20240102
  2. LEVOFLOXACIN [Suspect]
     Active Substance: LEVOFLOXACIN
     Indication: Product used for unknown indication
     Dosage: 500.000MG QD
     Route: 042
     Dates: start: 20231229, end: 20240102
  3. CHLORPROMAZINE [Suspect]
     Active Substance: CHLORPROMAZINE
     Indication: Infection
     Dosage: 12.500MG QD
     Route: 042
     Dates: start: 20231229, end: 20240102
  4. ACYCLOVIR [Concomitant]
     Active Substance: ACYCLOVIR
     Indication: Infection
     Dosage: 250.000MG TID
     Route: 042
     Dates: start: 20231221, end: 20240102
  5. CARMUSTINE [Concomitant]
     Active Substance: CARMUSTINE
     Indication: Product used for unknown indication
     Dosage: 590.000MG QD
     Route: 042
     Dates: start: 20231215, end: 20231215
  6. CYTARABINE [Concomitant]
     Active Substance: CYTARABINE
     Indication: Product used for unknown indication
     Dosage: 400.000MG QD
     Route: 042
     Dates: start: 20231215, end: 20231218
  7. ETOPOSIDE [Concomitant]
     Active Substance: ETOPOSIDE
     Indication: Antiviral prophylaxis
     Dosage: 400.000MG QD
     Route: 042
     Dates: start: 20231215, end: 20231218
  8. MELPHALAN [Concomitant]
     Active Substance: MELPHALAN
     Indication: Nausea
     Dosage: 280.000MG QD
     Route: 042
     Dates: start: 20231219, end: 20231219

REACTIONS (1)
  - Hepatic cytolysis [Recovering/Resolving]

NARRATIVE: CASE EVENT DATE: 20240102
